FAERS Safety Report 18655366 (Version 8)
Quarter: 2021Q3

REPORT INFORMATION
  Report Type: Report from Study
  Country: AU (occurrence: AU)
  Receive Date: 20201223
  Receipt Date: 20210910
  Transmission Date: 20211014
  Serious: Yes (Death, Life-Threatening, Hospitalization)
  Sender: FDA-Public Use
  Company Number: AU-ROCHE-2734417

PATIENT
  Age: 90 Year
  Sex: Male
  Weight: 86.9 kg

DRUGS (8)
  1. ATEZOLIZUMAB. [Suspect]
     Active Substance: ATEZOLIZUMAB
     Indication: HORMONE-REFRACTORY PROSTATE CANCER
     Route: 042
     Dates: start: 20201104, end: 20201104
  2. TRAMADOL. [Concomitant]
     Active Substance: TRAMADOL
  3. ADVIL [Concomitant]
     Active Substance: IBUPROFEN
  4. CABOZANTINIB [Suspect]
     Active Substance: CABOZANTINIB
     Indication: HORMONE-REFRACTORY PROSTATE CANCER
     Dosage: ON 17/NOV/2020, THE PATIENT RECEIVED MOST RECENT DOSE OF CABOZANTINIB TAKEN PRIOR TO THE EVENTS.
     Route: 048
     Dates: start: 20201104, end: 20201117
  5. CALTRATE [Concomitant]
     Active Substance: CALCIUM CARBONATE
  6. MICARDIS [Concomitant]
     Active Substance: TELMISARTAN
  7. INDOCIN [Concomitant]
     Active Substance: INDOMETHACIN
  8. PANADOL [Concomitant]
     Active Substance: ACETAMINOPHEN

REACTIONS (5)
  - Febrile neutropenia [Not Recovered/Not Resolved]
  - Staphylococcal bacteraemia [Fatal]
  - Periorbital infection [Fatal]
  - Troponin increased [Recovered/Resolved]
  - Pyrexia [Recovered/Resolved]

NARRATIVE: CASE EVENT DATE: 20201118
